FAERS Safety Report 8591103-9 (Version None)
Quarter: 2012Q3

REPORT INFORMATION
  Report Type: 
  Country: None (occurrence: None)
  Receive Date: 20120813
  Receipt Date: 20120802
  Transmission Date: 20120928
  Serious: Yes (Hospitalization, Other)
  Sender: FDA-Public Use
  Company Number: CHPA2012US011736

PATIENT
  Age: 59 Year
  Sex: Female

DRUGS (12)
  1. POTASSIUM [Concomitant]
     Indication: ELECTROLYTE SUBSTITUTION THERAPY
     Dosage: UNK, UNK
     Dates: start: 19920101
  2. MAXZIDE [Concomitant]
     Indication: HYPERTENSION
     Dosage: UNK, UNK
  3. LORATADINE [Concomitant]
     Indication: SINUS DISORDER
     Dosage: UNK, UNK
  4. EXCEDRIN (MIGRAINE) [Suspect]
     Indication: HEADACHE
     Dosage: UP TO 6 DF, PER DAY
     Route: 048
     Dates: end: 20090101
  5. EXCEDRIN (MIGRAINE) [Suspect]
     Dosage: 1 OR 2 DF, DAILY
     Route: 048
     Dates: start: 19970101, end: 20120601
  6. ATENOLOL [Concomitant]
     Indication: HYPERTENSION
     Dosage: UNK, UNK
     Dates: start: 19920101
  7. BENICAR [Concomitant]
     Indication: HYPERTENSION
     Dosage: UNK, UNK
     Dates: start: 19920101
  8. CYMBALTA [Concomitant]
     Indication: FIBROMYALGIA
     Dosage: UNK, UNK
  9. TOPAMAX [Concomitant]
     Indication: PROPHYLAXIS
     Dosage: UNK, UNK
  10. FLEXERIL [Concomitant]
     Indication: FIBROMYALGIA
     Dosage: UNK, UNK
  11. NORVASC [Concomitant]
     Indication: HYPERTENSION
     Dosage: UNK, UNK
     Dates: start: 19920101
  12. LIPITOR [Concomitant]
     Indication: BLOOD CHOLESTEROL INCREASED
     Dosage: UNK, UNK
     Dates: start: 19920101

REACTIONS (10)
  - SCAR [None]
  - INTRACRANIAL PRESSURE INCREASED [None]
  - THERAPEUTIC RESPONSE UNEXPECTED [None]
  - ARNOLD-CHIARI MALFORMATION [None]
  - NERVOUS SYSTEM DISORDER [None]
  - DISEASE RECURRENCE [None]
  - PROCEDURAL PAIN [None]
  - OFF LABEL USE [None]
  - HYPOAESTHESIA [None]
  - HEADACHE [None]
